FAERS Safety Report 9625840 (Version 3)
Quarter: 2013Q4

REPORT INFORMATION
  Report Type: Report from Study
  Country: US (occurrence: US)
  Receive Date: 20131016
  Receipt Date: 20131205
  Transmission Date: 20140711
  Serious: Yes (Other)
  Sender: FDA-Public Use
  Company Number: US-SA-2013SA101144

PATIENT
  Age: 74 Year
  Sex: Female
  Weight: 58.96 kg

DRUGS (7)
  1. AUBAGIO [Suspect]
     Indication: MULTIPLE SCLEROSIS
     Route: 048
     Dates: start: 20130521, end: 20131006
  2. ALL OTHER THERAPEUTIC PRODUCTS [Suspect]
     Indication: CARDIAC STRESS TEST
     Route: 065
     Dates: start: 20131002, end: 20131002
  3. GABAPENTIN [Concomitant]
     Indication: NEURALGIA
     Route: 065
     Dates: start: 2008
  4. VESICARE [Concomitant]
     Indication: MICTURITION URGENCY
     Dosage: DOSE - 5-10 MG
     Route: 065
     Dates: start: 2012
  5. CALCIUM [Concomitant]
  6. MULTIVITAMINS [Concomitant]
  7. VITAMIN D [Concomitant]

REACTIONS (7)
  - Mitral valve incompetence [Unknown]
  - Blood pressure increased [Not Recovered/Not Resolved]
  - Extrasystoles [Not Recovered/Not Resolved]
  - Chest discomfort [Not Recovered/Not Resolved]
  - Dyspnoea [Not Recovered/Not Resolved]
  - Headache [Not Recovered/Not Resolved]
  - Alopecia [Not Recovered/Not Resolved]
